FAERS Safety Report 8981129 (Version 2)
Quarter: 2013Q1

REPORT INFORMATION
  Report Type: Spontaneous
  Country: US (occurrence: US)
  Receive Date: 20121221
  Receipt Date: 20130110
  Transmission Date: 20140127
  Serious: No
  Sender: FDA-Public Use
  Company Number: US-009507513-1212USA006759

PATIENT
  Age: 20 None
  Sex: Female

DRUGS (1)
  1. IMPLANON [Suspect]
     Indication: CONTRACEPTION
     Dosage: 1 DF FOR 3 YEAR USE
     Dates: start: 20101216

REACTIONS (2)
  - Amenorrhoea [Recovered/Resolved]
  - Menstrual disorder [Unknown]
